FAERS Safety Report 6287160-5 (Version None)
Quarter: 2009Q3

REPORT INFORMATION
  Report Type: 
  Country: None (occurrence: None)
  Receive Date: 20090728
  Receipt Date: 20090716
  Transmission Date: 20100115
  Serious: Yes (Hospitalization)
  Sender: FDA-Public Use
  Company Number: FR-ELI_LILLY_AND_COMPANY-FR200907003232

PATIENT
  Sex: Male

DRUGS (6)
  1. PROZAC [Suspect]
     Dosage: 20 MG, DAILY (1/D)
     Route: 048
     Dates: start: 20061101, end: 20090528
  2. PRITORPLUS [Concomitant]
     Dosage: UNK, DAILY (1/D)
     Route: 048
     Dates: start: 20070101, end: 20090528
  3. PARIET [Concomitant]
     Dosage: 20 MG, DAILY (1/D)
     Route: 048
     Dates: start: 20061107, end: 20090528
  4. CRESTOR [Concomitant]
     Dosage: 10 MG, DAILY (1/D)
     Dates: start: 20061101
  5. TEMERIT                            /01339101/ [Concomitant]
     Dosage: 5 MG, UNK
     Dates: start: 20061101
  6. ALCOHOL [Concomitant]
     Dosage: UNK, UNK
     Dates: start: 20090601

REACTIONS (6)
  - ALCOHOL POISONING [None]
  - ASTHENIA [None]
  - HYPOCHLORAEMIA [None]
  - HYPONATRAEMIA [None]
  - MALAISE [None]
  - WEIGHT DECREASED [None]
